FAERS Safety Report 6552410-4 (Version None)
Quarter: 2010Q1

REPORT INFORMATION
  Report Type: 
  Country: None (occurrence: None)
  Receive Date: 20100120
  Receipt Date: 20100113
  Transmission Date: 20100710
  Serious: Yes (Death, Life-Threatening, Hospitalization)
  Sender: FDA-Public Use
  Company Number: 2010000061

PATIENT
  Age: 37 Year
  Sex: Male
  Weight: 99.5 kg

DRUGS (3)
  1. TREANDA [Suspect]
     Indication: HODGKIN'S DISEASE
     Dosage: (120 MG/M2,X DAYS EVERY 28 DAYS),INTRAVENOUS
     Route: 042
     Dates: start: 20090818, end: 20091117
  2. BACTRM DS(SULFAMETHOXAZOLE, TRIMETHOPRIM) [Concomitant]
  3. LEXAPRO [Concomitant]

REACTIONS (5)
  - BACTERIAL SEPSIS [None]
  - CARDIO-RESPIRATORY ARREST [None]
  - HYPOTENSION [None]
  - PNEUMONIA [None]
  - VIRAL INFECTION [None]
